FAERS Safety Report 4616181-0 (Version None)
Quarter: 2005Q1

REPORT INFORMATION
  Report Type: 
  Country: None (occurrence: None)
  Receive Date: 20050317
  Receipt Date: 20050304
  Transmission Date: 20050727
  Serious: Yes (Hospitalization)
  Sender: FDA-Public Use
  Company Number: 2005-UK-00379UK

PATIENT
  Age: 13 Month
  Sex: Female

DRUGS (3)
  1. NEVIRAPINE [Suspect]
     Indication: HIV INFECTION
  2. LOPINAVIR [Concomitant]
  3. AZT [Concomitant]

REACTIONS (4)
  - DIARRHOEA [None]
  - ORAL INTAKE REDUCED [None]
  - PYREXIA [None]
  - RASH GENERALISED [None]
